FAERS Safety Report 8839652 (Version 2)
Quarter: 2012Q4

REPORT INFORMATION
  Report Type: 
  Country: US (occurrence: US)
  Receive Date: 20121015
  Receipt Date: 20121031
  Transmission Date: 20130627
  Serious: Yes (Other)
  Sender: FDA-Public Use
  Company Number: US-BAYER-2012-104495

PATIENT
  Age: 43 Year
  Sex: Female
  Weight: 74.83 kg

DRUGS (8)
  1. GADAVIST [Suspect]
     Indication: MRI
     Dosage: 8 ml, ONCE
     Route: 042
     Dates: start: 20121004, end: 20121004
  2. EFFEXOR [Concomitant]
  3. FOLIC ACID [Concomitant]
  4. METHOTREXATE [Concomitant]
  5. VITAMIN B6 [Concomitant]
  6. VITAMIN B12 [Concomitant]
  7. VITAMIN C WITH BIOFLAVONOIDS [Concomitant]
  8. VITAMIN E [Concomitant]

REACTIONS (5)
  - Hypertension [Recovered/Resolved]
  - Nausea [Recovered/Resolved]
  - Salivary hypersecretion [Recovered/Resolved]
  - Sneezing [Recovered/Resolved]
  - Cough [Recovered/Resolved]
